FAERS Safety Report 9460590 (Version 1)
Quarter: 2013Q3

REPORT INFORMATION
  Report Type: Spontaneous
  Country: US (occurrence: US)
  Receive Date: 20130815
  Receipt Date: 20130815
  Transmission Date: 20140515
  Serious: No
  Sender: FDA-Public Use
  Company Number: US-009507513-1308USA003714

PATIENT
  Sex: Female

DRUGS (3)
  1. VICTRELIS [Suspect]
     Indication: HEPATITIS C
     Dosage: 800 MG / 3 TIMES DAILY
     Route: 048
     Dates: start: 20130629
  2. PEGASYS [Suspect]
     Dosage: UNK
  3. REBETOL [Suspect]
     Route: 048

REACTIONS (2)
  - Haemoglobin abnormal [Not Recovered/Not Resolved]
  - White blood cell count abnormal [Not Recovered/Not Resolved]
